FAERS Safety Report 17258028 (Version 2)
Quarter: 2020Q1

REPORT INFORMATION
  Report Type: Spontaneous
  Country: FR (occurrence: FR)
  Receive Date: 20200110
  Receipt Date: 20200117
  Transmission Date: 20200409
  Serious: Yes (Death)
  Sender: FDA-Public Use
  Company Number: FR-PFIZER INC-2020010524

PATIENT
  Age: 78 Year
  Sex: Male
  Weight: 56 kg

DRUGS (7)
  1. DIFFU K [Concomitant]
     Active Substance: POTASSIUM CHLORIDE
  2. LANSOPRAZOLE. [Concomitant]
     Active Substance: LANSOPRAZOLE
  3. ELIQUIS [Concomitant]
     Active Substance: APIXABAN
     Dosage: 1 DF, 2X/DAY (1DF IN THE MORNING, 1DF IN THE EVENING)
  4. VYNDAQEL [Suspect]
     Active Substance: TAFAMIDIS MEGLUMINE
     Dosage: 20 MG, DAILY
     Dates: end: 20191109
  5. AMIODARONE [Concomitant]
     Active Substance: AMIODARONE
  6. TAHOR [Concomitant]
     Active Substance: ATORVASTATIN CALCIUM
  7. LASILIX SPECIAL [FUROSEMIDE SODIUM] [Concomitant]
     Active Substance: FUROSEMIDE SODIUM
     Dosage: UNK

REACTIONS (1)
  - Cardiac failure [Fatal]

NARRATIVE: CASE EVENT DATE: 201911
